FAERS Safety Report 9245459 (Version 3)
Quarter: 2014Q1

REPORT INFORMATION
  Report Type: Spontaneous
  Country: GB (occurrence: GB)
  Receive Date: 20130422
  Receipt Date: 20140122
  Transmission Date: 20141002
  Serious: No
  Sender: FDA-Public Use
  Company Number: GB-ROCHE-1216055

PATIENT
  Age: 27 Year
  Sex: Female
  Weight: 64 kg

DRUGS (3)
  1. ROACCUTANE [Suspect]
     Indication: ACNE
     Route: 065
     Dates: start: 20120612, end: 20121106
  2. ROACCUTANE [Suspect]
     Route: 065
     Dates: start: 20121107, end: 201212
  3. ROACCUTANE [Suspect]
     Route: 065
     Dates: start: 20130301, end: 20130302

REACTIONS (1)
  - Pregnancy [Unknown]
